FAERS Safety Report 7299216-9 (Version None)
Quarter: 2011Q1

REPORT INFORMATION
  Report Type: 
  Country: None (occurrence: None)
  Receive Date: 20110217
  Receipt Date: 20110207
  Transmission Date: 20110831
  Serious: Yes (Other)
  Sender: FDA-Public Use
  Company Number: PHHY2011CA09832

PATIENT
  Age: 52 Year
  Sex: Female

DRUGS (5)
  1. MYCOPHENOLATE MOFETIL [Suspect]
     Dosage: 1000 MG, BID
     Route: 048
  2. TACROLIMUS [Suspect]
     Dosage: 2.5 MG, BID
     Route: 048
  3. MYCOPHENOLATE MOFETIL [Suspect]
     Dosage: 500 MG, BID
     Route: 048
  4. DACLIZUMAB [Suspect]
  5. SIROLIMUS [Suspect]
     Dosage: UNK
     Dates: end: 20070501

REACTIONS (8)
  - ASTHENIA [None]
  - OEDEMA [None]
  - DIARRHOEA [None]
  - ALOPECIA [None]
  - ALOPECIA TOTALIS [None]
  - DRUG LEVEL FLUCTUATING [None]
  - DIABETIC GASTROPARESIS [None]
  - ACNE [None]
